FAERS Safety Report 6125277-6 (Version None)
Quarter: 2009Q1

REPORT INFORMATION
  Report Type: 
  Country: None (occurrence: None)
  Receive Date: 20090319
  Receipt Date: 20090319
  Transmission Date: 20090719
  Serious: Yes (Hospitalization)
  Sender: FDA-Public Use
  Company Number: None

PATIENT
  Age: 61 Year
  Sex: Male
  Weight: 138.2 kg

DRUGS (9)
  1. GLIMEPIRIDE [Suspect]
     Indication: TYPE 2 DIABETES MELLITUS
     Dosage: TITRATED DOSE BETWEEN 1 MG AND 6 MG - ORAL
     Route: 048
     Dates: start: 20080320
  2. BENDROFLUMETHIAZIDE [Concomitant]
  3. METFORMIN [Concomitant]
  4. SIMVASTATIN [Concomitant]
  5. FUROSEMIDE [Concomitant]
  6. AMLODIPINE [Concomitant]
  7. METOPROLOL TARTRATE [Concomitant]
  8. ACETYLSALICYLIC ACID [Concomitant]
  9. SPIRONOLACTONE [Concomitant]

REACTIONS (3)
  - CARDIAC FAILURE [None]
  - CHEST DISCOMFORT [None]
  - RENAL FAILURE [None]
